FAERS Safety Report 9431580 (Version 1)
Quarter: 2013Q3

REPORT INFORMATION
  Report Type: Spontaneous
  Country: US (occurrence: US)
  Receive Date: 20130731
  Receipt Date: 20130731
  Transmission Date: 20140515
  Serious: Yes (Other)
  Sender: FDA-Public Use
  Company Number: US-009507513-1307USA015351

PATIENT
  Sex: Female

DRUGS (1)
  1. JANUMET XR [Suspect]
     Dosage: STRENGTH 100/1000, DOSE 100/1000 UNITS UNSPECIFIED
     Route: 048

REACTIONS (1)
  - Renal failure [Unknown]
